FAERS Safety Report 24819086 (Version 2)
Quarter: 2025Q3

REPORT INFORMATION
  Report Type: Spontaneous
  Country: EU (occurrence: None)
  Receive Date: 20250108
  Receipt Date: 20250729
  Transmission Date: 20251021
  Serious: Yes (Life-Threatening, Hospitalization)
  Sender: ORION
  Company Number: EU-Orion Corporation ORION PHARMA-TREX2025-0003

PATIENT
  Age: 56 Year
  Sex: Female
  Weight: 100 kg

DRUGS (8)
  1. METHOTREXATE SODIUM [Suspect]
     Active Substance: METHOTREXATE SODIUM
     Indication: Psoriasis
     Dosage: STRENGTH: 10 MG
     Dates: start: 202405, end: 20241114
  2. ATOVAQUONE [Suspect]
     Active Substance: ATOVAQUONE
     Indication: Pneumocystis jirovecii pneumonia
     Dates: start: 20241128, end: 20241202
  3. BACTRIM [Suspect]
     Active Substance: SULFAMETHOXAZOLE\TRIMETHOPRIM
     Indication: Pneumocystis jirovecii pneumonia
     Dates: start: 20241122, end: 20241127
  4. FOLIC ACID [Concomitant]
     Active Substance: FOLIC ACID
     Dosage: 2 TABLETS/WEEK 48 HOURS AFTER
  5. AMLODIPINE [Concomitant]
     Active Substance: AMLODIPINE BESYLATE
  6. ATORVASTATIN [Concomitant]
     Active Substance: ATORVASTATIN
  7. CANDESARTAN [Concomitant]
     Active Substance: CANDESARTAN
  8. ESIDREX [Concomitant]
     Active Substance: HYDROCHLOROTHIAZIDE

REACTIONS (12)
  - Interstitial lung disease [Recovered/Resolved]
  - Hepatic cytolysis [Recovering/Resolving]
  - Acute kidney injury [Recovering/Resolving]
  - Pancytopenia [Recovering/Resolving]
  - Odynophagia [Unknown]
  - Decreased appetite [Unknown]
  - Respiratory failure [Unknown]
  - Pneumonia haemophilus [Unknown]
  - Toxicity to various agents [Unknown]
  - General physical health deterioration [Unknown]
  - Cheilitis [Unknown]
  - Bordetella infection [Unknown]

NARRATIVE: CASE EVENT DATE: 20241101
